FAERS Safety Report 4958307-5 (Version None)
Quarter: 2006Q1

REPORT INFORMATION
  Report Type: 
  Country: None (occurrence: None)
  Receive Date: 20060329
  Receipt Date: 20060329
  Transmission Date: 20060701
  Serious: Yes (Hospitalization)
  Sender: FDA-Public Use
  Company Number: None

PATIENT
  Age: 60 Year
  Sex: Male

DRUGS (1)
  1. OMNIPAQUE 300 [Suspect]
     Indication: ANGIOGRAM CEREBRAL
     Dosage: ONCE INTRA-ARTERIAL
     Route: 013
     Dates: start: 20060202, end: 20060202

REACTIONS (3)
  - BLINDNESS TRANSIENT [None]
  - COLOUR BLINDNESS [None]
  - POST PROCEDURAL COMPLICATION [None]
